FAERS Safety Report 16910848 (Version 1)
Quarter: 2019Q4

REPORT INFORMATION
  Report Type: Spontaneous
  Country: US (occurrence: US)
  Receive Date: 20191012
  Receipt Date: 20191012
  Transmission Date: 20200122
  Serious: No
  Sender: FDA-Public Use
  Company Number: US-BION-007450

PATIENT
  Age: 68 Year
  Sex: Female

DRUGS (1)
  1. BION PHARMA^S PROGESTERONE 100 MG SOFTGELS [Suspect]
     Active Substance: PROGESTERONE
     Indication: PREVENTION OF ENDOMETRIAL HYPERPLASIA
     Dosage: STRENGTH: 100 MG

REACTIONS (2)
  - Product substitution issue [Unknown]
  - Vaginal haemorrhage [Unknown]

NARRATIVE: CASE EVENT DATE: 20180914
